FAERS Safety Report 23459117 (Version 2)
Quarter: 2024Q1

REPORT INFORMATION
  Report Type: Spontaneous
  Country: JP (occurrence: JP)
  Receive Date: 20240131
  Receipt Date: 20240229
  Transmission Date: 20240410
  Serious: Yes (Hospitalization)
  Sender: FDA-Public Use
  Company Number: JP-Merck Healthcare KGaA-2024004595

PATIENT
  Age: 39 Year
  Sex: Male
  Weight: 105 kg

DRUGS (3)
  1. METGLUCO [Suspect]
     Active Substance: METFORMIN HYDROCHLORIDE
     Indication: Type 2 diabetes mellitus
     Dosage: 4 TABLETS AT ONCE
     Route: 048
  2. IPRAGLIFLOZIN L-PROLINE [Concomitant]
     Active Substance: IPRAGLIFLOZIN L-PROLINE
     Indication: Type 2 diabetes mellitus
  3. SITAGLIPTIN [SITAGLIPTIN MALATE] [Concomitant]
     Indication: Type 2 diabetes mellitus

REACTIONS (3)
  - Diabetes mellitus inadequate control [Unknown]
  - Increased appetite [Unknown]
  - Weight increased [Not Recovered/Not Resolved]
